FAERS Safety Report 8715475 (Version 2)
Quarter: 2015Q2

REPORT INFORMATION
  Report Type: Report from Study
  Country: US (occurrence: US)
  Receive Date: 20120809
  Receipt Date: 20150411
  Transmission Date: 20150821
  Serious: Yes (Other)
  Sender: FDA-Public Use
  Company Number: US-ROCHE-1098187

PATIENT
  Sex: Female

DRUGS (14)
  1. XOLAIR [Suspect]
     Active Substance: OMALIZUMAB
     Route: 058
  2. SINGULAIR [Concomitant]
     Active Substance: MONTELUKAST SODIUM
     Route: 048
  3. DICLOFENAC SODIUM. [Concomitant]
     Active Substance: DICLOFENAC SODIUM
     Route: 048
  4. EPIPEN [Concomitant]
     Active Substance: EPINEPHRINE
     Route: 030
  5. ACTONEL [Concomitant]
     Active Substance: RISEDRONATE SODIUM
     Route: 048
  6. ADVAIR HFA [Concomitant]
     Active Substance: FLUTICASONE PROPIONATE\SALMETEROL XINAFOATE
  7. XOLAIR [Suspect]
     Active Substance: OMALIZUMAB
     Indication: ASTHMA
     Route: 058
  8. COMBIVENT [Concomitant]
     Active Substance: ALBUTEROL SULFATE\IPRATROPIUM BROMIDE
  9. RHINOCORT [Concomitant]
     Active Substance: BUDESONIDE
     Dosage: 32 MCG
     Route: 045
  10. ADVAIR DISKUS [Concomitant]
     Active Substance: FLUTICASONE PROPIONATE\SALMETEROL XINAFOATE
     Dosage: 250-50 MCG
     Route: 065
  11. OMEGA 3 [Concomitant]
     Active Substance: OMEGA-3 FATTY ACIDS
     Dosage: 120-1000 MG
     Route: 048
  12. SYNVISC [Concomitant]
     Active Substance: HYALURONATE SODIUM
     Dosage: 8 MG/ML
     Route: 014
  13. CLARITIN [Concomitant]
     Active Substance: LORATADINE
     Route: 048
  14. PREVACID [Concomitant]
     Active Substance: LANSOPRAZOLE
     Route: 048

REACTIONS (4)
  - Obesity [Unknown]
  - Dyspnoea [Unknown]
  - Poor quality sleep [Unknown]
  - Asthenia [Unknown]
